FAERS Safety Report 12157464 (Version 1)
Quarter: 2016Q1

REPORT INFORMATION
  Report Type: Spontaneous
  Country: US (occurrence: US)
  Receive Date: 20160308
  Receipt Date: 20160308
  Transmission Date: 20160526
  Serious: Yes (Other)
  Sender: FDA-Public Use
  Company Number: US-009507513-1603USA001826

PATIENT
  Age: 31 Year
  Sex: Female
  Weight: 63 kg

DRUGS (1)
  1. NUVARING [Suspect]
     Active Substance: ETHINYL ESTRADIOL\ETONOGESTREL
     Indication: CONTRACEPTION
     Dosage: 3 WEEK IN 1 WEEK OUT
     Route: 067
     Dates: start: 201601, end: 20160229

REACTIONS (6)
  - Confusional state [Not Recovered/Not Resolved]
  - Headache [Not Recovered/Not Resolved]
  - Eye irritation [Not Recovered/Not Resolved]
  - Hemiparesis [Not Recovered/Not Resolved]
  - Vision blurred [Not Recovered/Not Resolved]
  - Walking disability [Not Recovered/Not Resolved]

NARRATIVE: CASE EVENT DATE: 20160228
